FAERS Safety Report 6154106-X (Version None)
Quarter: 2009Q2

REPORT INFORMATION
  Report Type: 
  Country: None (occurrence: None)
  Receive Date: 20090414
  Receipt Date: 20090407
  Transmission Date: 20091009
  Serious: Yes (Hospitalization)
  Sender: FDA-Public Use
  Company Number: PHHY2009CN07902

PATIENT
  Age: 30 Year
  Sex: Male

DRUGS (1)
  1. TEGRETOL [Suspect]
     Indication: EPILEPSY
     Dosage: UNK
     Route: 048
     Dates: start: 20080315

REACTIONS (16)
  - ALANINE AMINOTRANSFERASE INCREASED [None]
  - BLISTER [None]
  - CONJUNCTIVAL HYPERAEMIA [None]
  - CONJUNCTIVAL OEDEMA [None]
  - GAMMA-GLUTAMYLTRANSFERASE INCREASED [None]
  - GENITAL HERPES [None]
  - HEPATOMEGALY [None]
  - MOUTH ULCERATION [None]
  - ORAL HERPES [None]
  - PRURITUS [None]
  - PYREXIA [None]
  - RASH GENERALISED [None]
  - STEVENS-JOHNSON SYNDROME [None]
  - SWELLING FACE [None]
  - URINE KETONE BODY PRESENT [None]
  - WHITE BLOOD CELL COUNT INCREASED [None]
